FAERS Safety Report 10411525 (Version 3)
Quarter: 2015Q1

REPORT INFORMATION
  Report Type: Report from Study
  Country: PL (occurrence: PL)
  Receive Date: 20140827
  Receipt Date: 20150223
  Transmission Date: 20150720
  Serious: Yes (Hospitalization)
  Sender: FDA-Public Use
  Company Number: PL-BIOGENIDEC-2014BI082760

PATIENT
  Age: 43 Year
  Sex: Female
  Weight: 41 kg

DRUGS (5)
  1. TAROMENTIN [Concomitant]
  2. BIOTAKSYM [Concomitant]
     Active Substance: CEFOTAXIME SODIUM
  3. BIODACYNA [Concomitant]
     Active Substance: AMIKACIN SULFATE
  4. CIPRONEX [Concomitant]
     Active Substance: CIPROFLOXACIN
  5. BIIB017 [Suspect]
     Active Substance: PEGINTERFERON BETA-1A
     Indication: MULTIPLE SCLEROSIS
     Route: 058
     Dates: start: 20130830, end: 20140417

REACTIONS (1)
  - Pneumonia [Recovered/Resolved]

NARRATIVE: CASE EVENT DATE: 20140517
